FAERS Safety Report 12853076 (Version 15)
Quarter: 2022Q3

REPORT INFORMATION
  Report Type: Report from Study
  Country: US (occurrence: US)
  Receive Date: 20161017
  Receipt Date: 20220701
  Transmission Date: 20221027
  Serious: Yes (Other)
  Sender: FDA-Public Use
  Company Number: US-JAZZ-2016-US-014084

PATIENT
  Age: 60 Year
  Sex: Female

DRUGS (51)
  1. XYREM [Suspect]
     Active Substance: SODIUM OXYBATE
     Indication: Narcolepsy
     Dosage: 2.25 GRAM, BID
     Dates: start: 200405, end: 2004
  2. XYREM [Suspect]
     Active Substance: SODIUM OXYBATE
     Dosage: 3 GRAM, BID
     Route: 048
     Dates: start: 200903, end: 200904
  3. XYREM [Suspect]
     Active Substance: SODIUM OXYBATE
     Dosage: DOSE ADJUSTMENT
     Route: 048
     Dates: start: 200904, end: 201511
  4. XYREM [Suspect]
     Active Substance: SODIUM OXYBATE
     Dosage: 3.75 GRAM, FIRST DOSE
     Route: 048
     Dates: start: 201512
  5. XYREM [Suspect]
     Active Substance: SODIUM OXYBATE
     Dosage: 4.5 GRAM, SECOND DOSE
     Route: 048
     Dates: start: 201512
  6. BUPRENORPHINE\NALOXONE [Suspect]
     Active Substance: BUPRENORPHINE\NALOXONE
     Indication: Pain
  7. LYRICA [Suspect]
     Active Substance: PREGABALIN
     Indication: Fibromyalgia
     Dosage: UNK
     Dates: start: 20160724, end: 20160726
  8. ALPHA LIPOIC ACID [Concomitant]
     Active Substance: .ALPHA.-LIPOIC ACID
     Indication: Product used for unknown indication
     Dosage: UNK
     Dates: start: 20151020
  9. BIOTIN [Concomitant]
     Active Substance: BIOTIN
     Indication: Product used for unknown indication
     Dosage: UNK
     Dates: start: 20151020
  10. COENZYME Q10 [Concomitant]
     Active Substance: DIETARY SUPPLEMENT\UBIDECARENONE
     Indication: Product used for unknown indication
     Dosage: UNK
     Dates: start: 20151020
  11. COPPER [Concomitant]
     Active Substance: COPPER
     Indication: Product used for unknown indication
  12. CRESTOR [Concomitant]
     Active Substance: ROSUVASTATIN CALCIUM
     Indication: Product used for unknown indication
  13. FISH OIL [Concomitant]
     Active Substance: FISH OIL
     Indication: Product used for unknown indication
     Dosage: PEARLS SOFTGEL
     Dates: start: 20151020
  14. MAGNESIUM OXIDE [Concomitant]
     Active Substance: MAGNESIUM OXIDE
     Indication: Product used for unknown indication
     Dosage: UNK
     Dates: start: 20151020
  15. MANGANESE GLUCONATE [Concomitant]
     Active Substance: MANGANESE GLUCONATE
     Indication: Product used for unknown indication
     Dosage: UNK
     Dates: start: 20151020
  16. MELATONIN [Concomitant]
     Active Substance: MELATONIN
     Indication: Product used for unknown indication
     Dosage: UNK
     Dates: start: 20151020
  17. NIACIN [Concomitant]
     Active Substance: NIACIN
     Indication: Product used for unknown indication
  18. SELENIUM [Concomitant]
     Active Substance: SELENIUM
     Indication: Product used for unknown indication
     Dosage: UNK
     Dates: start: 20151020
  19. VALTREX [Concomitant]
     Active Substance: VALACYCLOVIR HYDROCHLORIDE
     Indication: Product used for unknown indication
     Dosage: CAPLET
     Dates: start: 20151020
  20. VITAMIN D3 [Concomitant]
     Active Substance: CHOLECALCIFEROL
     Indication: Product used for unknown indication
  21. PROBIOTICS NOS [Concomitant]
     Active Substance: PROBIOTICS NOS
     Indication: Product used for unknown indication
  22. ZINC [Concomitant]
     Active Substance: ZINC
     Indication: Product used for unknown indication
     Dosage: UNK
     Dates: start: 20151020
  23. LEXAPRO [Concomitant]
     Active Substance: ESCITALOPRAM OXALATE
     Indication: Product used for unknown indication
  24. LIOTHYRONINE SODIUM [Concomitant]
     Active Substance: LIOTHYRONINE SODIUM
     Indication: Product used for unknown indication
  25. AMLODIPINE BESYLATE [Concomitant]
     Active Substance: AMLODIPINE BESYLATE
     Indication: Product used for unknown indication
     Dosage: UNK, QD
     Dates: start: 20130819
  26. OMEPRAZOLE [Concomitant]
     Active Substance: OMEPRAZOLE
     Indication: Product used for unknown indication
  27. LISINOPRIL [Concomitant]
     Active Substance: LISINOPRIL
     Indication: Product used for unknown indication
     Dosage: UNK
  28. BACLOFEN [Concomitant]
     Active Substance: BACLOFEN
     Indication: Product used for unknown indication
     Dosage: UNK
     Dates: start: 20140314
  29. EVOXAC [Concomitant]
     Active Substance: CEVIMELINE HYDROCHLORIDE
     Indication: Product used for unknown indication
     Dosage: UNK
     Dates: start: 20130226
  30. WELLBUTRIN [Concomitant]
     Active Substance: BUPROPION HYDROCHLORIDE
     Indication: Product used for unknown indication
  31. ALPRAZOLAM [Concomitant]
     Active Substance: ALPRAZOLAM
     Indication: Product used for unknown indication
  32. XANAX [Concomitant]
     Active Substance: ALPRAZOLAM
     Indication: Product used for unknown indication
  33. VITAMIN B5 [CALCIUM PANTOTHENATE] [Concomitant]
     Indication: Product used for unknown indication
     Dosage: UNK
     Dates: start: 20151020
  34. FOLIC ACID [Concomitant]
     Active Substance: FOLIC ACID
     Indication: Fibromyalgia
     Dosage: UNK
     Dates: start: 20160724
  35. FOLIC ACID [Concomitant]
     Active Substance: FOLIC ACID
     Dosage: 0000
     Dates: start: 20111101
  36. GLUCOSAMINE + CHONDORITIN [Concomitant]
     Indication: Product used for unknown indication
     Dosage: QD
     Dates: start: 20151020
  37. LEVACECARNINE HYDROCHLORIDE [Concomitant]
     Active Substance: LEVACECARNINE HYDROCHLORIDE
     Indication: Product used for unknown indication
     Dosage: UNK
     Dates: start: 20151101
  38. VITAMIN B1 [Concomitant]
     Active Substance: THIAMINE HYDROCHLORIDE
     Indication: Product used for unknown indication
     Dosage: UNK
     Dates: start: 20151020
  39. VITAMIN C [Concomitant]
     Active Substance: ASCORBIC ACID
     Indication: Product used for unknown indication
     Dosage: UNK
     Dates: start: 20151020
  40. BETA CAROTENE [Concomitant]
     Active Substance: BETA CAROTENE
     Indication: Product used for unknown indication
     Dosage: UNK
     Dates: start: 20111101
  41. ZINC CHELATED [Concomitant]
     Indication: Product used for unknown indication
     Dosage: 0000
     Dates: start: 20151020
  42. VITAMIN E [Concomitant]
     Active Substance: .ALPHA.-TOCOPHEROL
     Indication: Product used for unknown indication
     Dosage: UNK
     Dates: start: 20151020
  43. PANTOPRAZOLE SODIUM [Concomitant]
     Active Substance: PANTOPRAZOLE SODIUM
     Indication: Product used for unknown indication
     Dosage: UNK
     Dates: start: 20211126
  44. AJOVY [Concomitant]
     Active Substance: FREMANEZUMAB-VFRM
     Indication: Product used for unknown indication
     Dosage: 225 MG/1.5 ML AUTOINJE
     Dates: start: 20210801
  45. DLPA [Concomitant]
     Indication: Product used for unknown indication
     Dosage: UNK
     Dates: start: 20151020
  46. NAC [DICLOFENAC SODIUM] [Concomitant]
     Indication: Product used for unknown indication
     Dosage: UNK
     Dates: start: 20151020
  47. CLA 1000 [Concomitant]
     Indication: Product used for unknown indication
     Dosage: 0000
     Dates: start: 20151101
  48. VITAMIN B12 [Concomitant]
     Active Substance: CYANOCOBALAMIN
     Indication: Product used for unknown indication
     Dosage: UNK
     Dates: start: 20210801
  49. ROSUVASTATIN CALCIUM [Concomitant]
     Active Substance: ROSUVASTATIN CALCIUM
     Indication: Product used for unknown indication
     Dosage: UNK
     Dates: start: 20211002
  50. RETINOL [Concomitant]
     Active Substance: RETINOL
     Indication: Product used for unknown indication
     Dosage: SOFTGEL
     Dates: start: 20151101
  51. ACETAMINOPHEN\HYDROCODONE [Concomitant]
     Active Substance: ACETAMINOPHEN\HYDROCODONE
     Indication: Product used for unknown indication
     Dosage: 5-325 MG
     Dates: start: 20220516

REACTIONS (22)
  - Bursa disorder [Not Recovered/Not Resolved]
  - Spondylolisthesis [Not Recovered/Not Resolved]
  - Scoliosis [Not Recovered/Not Resolved]
  - Suicidal ideation [Recovered/Resolved]
  - Depression [Not Recovered/Not Resolved]
  - Tendonitis [Not Recovered/Not Resolved]
  - Inflammation [Not Recovered/Not Resolved]
  - Fall [Recovered/Resolved]
  - Fibromyalgia [Unknown]
  - Migraine [Recovering/Resolving]
  - Illness [Not Recovered/Not Resolved]
  - Dysuria [Unknown]
  - Stress [Not Recovered/Not Resolved]
  - Neck pain [Unknown]
  - Spinal osteoarthritis [Unknown]
  - Somnolence [Unknown]
  - Electrocardiogram abnormal [Unknown]
  - Back pain [Unknown]
  - Nausea [Not Recovered/Not Resolved]
  - Vomiting [Unknown]
  - Headache [Unknown]
  - Drug interaction [Unknown]

NARRATIVE: CASE EVENT DATE: 20190319
